FAERS Safety Report 8590826-5 (Version None)
Quarter: 2012Q3

REPORT INFORMATION
  Report Type: 
  Country: None (occurrence: None)
  Receive Date: 20120731
  Receipt Date: 20120719
  Transmission Date: 20120928
  Serious: Yes (Hospitalization, Other)
  Sender: FDA-Public Use
  Company Number: VAL_00798_2012

PATIENT
  Age: 62 Year
  Sex: Female

DRUGS (5)
  1. AMPHOTERICIN B [Concomitant]
  2. VORICONAZOLE [Suspect]
     Indication: ZYGOMYCOSIS
     Dosage: SEE IMAGE
     Route: 048
  3. VORICONAZOLE [Suspect]
     Indication: ZYGOMYCOSIS
     Dosage: SEE IMAGE
     Route: 048
  4. VORICONAZOLE [Suspect]
     Indication: ZYGOMYCOSIS
     Dosage: SEE IMAGE
     Route: 048
  5. CARBAMAZEPINE [Suspect]
     Indication: BIPOLAR DISORDER
     Dosage: (200 MG BID ORAL)
     Route: 048
     Dates: start: 20050101

REACTIONS (4)
  - TREATMENT FAILURE [None]
  - CYP2C19 POLYMORPHISM [None]
  - CANDIDIASIS [None]
  - DRUG INTERACTION [None]
